FAERS Safety Report 9011846 (Version 1)
Quarter: 2012Q4

REPORT INFORMATION
  Report Type: Spontaneous
  Country: US (occurrence: None)
  Receive Date: 20121228
  Receipt Date: 20121228
  Transmission Date: 20130627
  Serious: Yes (Other)
  Sender: FDA-Public Use
  Company Number: JPI-P-026790

PATIENT
  Age: 62 Year
  Sex: Female

DRUGS (1)
  1. XYREM (500 MILLIGRAM/MILLILITERS, SOLUTION) (SODIUM OXYBATE) [Suspect]
     Indication: NARCOLEPSY
     Dosage: (4.5 GM,2 IN 1 D)
     Route: 048
     Dates: start: 20120301

REACTIONS (5)
  - Lower limb fracture [None]
  - Cough [None]
  - Nausea [None]
  - Vomiting [None]
  - Gait disturbance [None]
